FAERS Safety Report 18299979 (Version 3)
Quarter: 2020Q4

REPORT INFORMATION
  Report Type: Spontaneous
  Country: US (occurrence: US)
  Receive Date: 20200923
  Receipt Date: 20201008
  Transmission Date: 20210113
  Serious: No
  Sender: FDA-Public Use
  Company Number: US-SA-2020SA260331

PATIENT

DRUGS (1)
  1. SELSUN BLUE [Suspect]
     Active Substance: SELENIUM SULFIDE
     Indication: DANDRUFF
     Dosage: UNK

REACTIONS (2)
  - Drug ineffective [Unknown]
  - Product preparation issue [Unknown]
